FAERS Safety Report 15424137 (Version 1)
Quarter: 2018Q4

REPORT INFORMATION
  Report Type: Spontaneous
  Country: DE (occurrence: DE)
  Receive Date: 20180925
  Receipt Date: 20180925
  Transmission Date: 20190204
  Serious: Yes (Life-Threatening, Hospitalization, Other)
  Sender: FDA-Public Use
  Company Number: DE-MYLANLABS-2018M1070261

PATIENT
  Age: 16 Month
  Sex: Male
  Weight: 9 kg

DRUGS (2)
  1. SALBUBRONCH ELIXIER [Suspect]
     Active Substance: ALBUTEROL SULFATE
     Indication: UPPER RESPIRATORY TRACT INFECTION
     Dosage: 3 SEPERATED DOSES DAILY DOSE: 75 GTT DROP(S) EVERY DAY
     Route: 048
     Dates: start: 20170915, end: 20170916
  2. SALBUTAMOL [Suspect]
     Active Substance: ALBUTEROL
     Indication: UPPER RESPIRATORY TRACT INFECTION
     Dosage: DAILY DOSE: 75 GTT DROP(S) EVERY DAYS
     Route: 048
     Dates: start: 20170915, end: 20170916

REACTIONS (3)
  - Partial seizures [Recovered/Resolved]
  - Status epilepticus [Recovered/Resolved]
  - Epilepsy [Recovered/Resolved]

NARRATIVE: CASE EVENT DATE: 20170916
